FAERS Safety Report 12197615 (Version 1)
Quarter: 2016Q1

REPORT INFORMATION
  Report Type: Spontaneous
  Country: US (occurrence: US)
  Receive Date: 20160322
  Receipt Date: 20160322
  Transmission Date: 20160526
  Serious: No
  Sender: FDA-Public Use
  Company Number: US-PAR PHARMACEUTICAL, INC-2015SCPR014012

PATIENT

DRUGS (2)
  1. ENBREL [Concomitant]
     Active Substance: ETANERCEPT
     Indication: PRODUCT USED FOR UNKNOWN INDICATION
     Dosage: UNK, UNKNOWN
     Route: 065
     Dates: start: 201503
  2. HYDROXYUREA. [Suspect]
     Active Substance: HYDROXYUREA
     Indication: IMMUNE THROMBOCYTOPENIC PURPURA
     Dosage: 2 DF, DAILY
     Route: 048
     Dates: start: 20150325

REACTIONS (3)
  - Oral herpes [Unknown]
  - Product use issue [Unknown]
  - Lip swelling [Recovered/Resolved]

NARRATIVE: CASE EVENT DATE: 2015
